FAERS Safety Report 6437768-9 (Version None)
Quarter: 2009Q4

REPORT INFORMATION
  Report Type: 
  Country: None (occurrence: None)
  Receive Date: 20091112
  Receipt Date: 20091103
  Transmission Date: 20100525
  Serious: Yes (Other)
  Sender: FDA-Public Use
  Company Number: US-JNJCH-2009028934

PATIENT
  Age: 52 Year
  Sex: Male
  Weight: 63.5 kg

DRUGS (1)
  1. COOL MINT LISTERINE [Suspect]
     Indication: DENTAL DISORDER PROPHYLAXIS
     Dosage: TEXT:UNSPECIFIED
     Route: 050

REACTIONS (2)
  - PRODUCT QUALITY ISSUE [None]
  - SKIN LACERATION [None]
